FAERS Safety Report 5588180-6 (Version None)
Quarter: 2008Q1

REPORT INFORMATION
  Report Type: 
  Country: None (occurrence: None)
  Receive Date: 20080108
  Receipt Date: 20071231
  Transmission Date: 20080703
  Serious: Yes (Death)
  Sender: FDA-Public Use
  Company Number: 2008SP000094

PATIENT
  Age: 55 Year
  Sex: Female

DRUGS (2)
  1. PEGETRON [Suspect]
     Indication: DRUG USE FOR UNKNOWN INDICATION
     Dosage: 80 MCG; SC
     Route: 058
     Dates: start: 20070801
  2. PEGETRON (PEGINTERFERON ALFA-2B W/RIBAVIRIN) (PEGYLATED INTERFERON ALF [Suspect]
     Dosage: PO
     Route: 048
     Dates: start: 20070801

REACTIONS (1)
  - OVARIAN CANCER [None]
